FAERS Safety Report 6153546-2 (Version None)
Quarter: 2009Q2

REPORT INFORMATION
  Report Type: 
  Country: None (occurrence: None)
  Receive Date: 20090409
  Receipt Date: 20090409
  Transmission Date: 20091009
  Serious: Yes (Other)
  Sender: FDA-Public Use
  Company Number: None

PATIENT
  Sex: Female
  Weight: 45.3597 kg

DRUGS (1)
  1. SYNTHROID [Suspect]
     Indication: HYPOTHYROIDISM
     Dosage: 100 MCG DAILY PO
     Route: 048
     Dates: start: 20060214, end: 20060324

REACTIONS (3)
  - CONDITION AGGRAVATED [None]
  - FATIGUE [None]
  - HYPOTHYROIDISM [None]
